FAERS Safety Report 4583695-1 (Version None)
Quarter: 2005Q1

REPORT INFORMATION
  Report Type: 
  Country: None (occurrence: None)
  Receive Date: 20050216
  Receipt Date: 20050209
  Transmission Date: 20050727
  Serious: Yes (Hospitalization)
  Sender: FDA-Public Use
  Company Number: TW-BRISTOL-MYERS SQUIBB COMPANY-12856282

PATIENT
  Age: 67 Year
  Sex: Female
  Weight: 58 kg

DRUGS (2)
  1. CISPLATIN [Suspect]
     Indication: CERVIX CARCINOMA
     Dosage: ADMINISTERED ON DAY 1, EVERY 28 DAYS
     Route: 042
     Dates: start: 20041208, end: 20041208
  2. IRINOTECAN HCL [Suspect]
     Indication: CERVIX CARCINOMA
     Dosage: ADMINISTERED ON DAY 1, 8 AND 15, EVERY 28 DAYS
     Route: 042
     Dates: start: 20041208, end: 20041208

REACTIONS (1)
  - PYREXIA [None]
